FAERS Safety Report 25882787 (Version 1)
Quarter: 2025Q4

REPORT INFORMATION
  Report Type: Spontaneous
  Country: US (occurrence: US)
  Receive Date: 20251006
  Receipt Date: 20251006
  Transmission Date: 20260117
  Serious: Yes (Other)
  Sender: BLUEPRINT MEDICINES
  Company Number: US-Blueprint Medicines Corporation-2025-AER-02129

PATIENT
  Age: 30 Year
  Sex: Female

DRUGS (1)
  1. AYVAKIT [Suspect]
     Active Substance: AVAPRITINIB
     Indication: Mast cell activation syndrome
     Route: 065
     Dates: start: 20250927

REACTIONS (6)
  - Suicidal ideation [Unknown]
  - Condition aggravated [Unknown]
  - Crying [Unknown]
  - Nausea [Unknown]
  - Wrong technique in product usage process [Unknown]
  - Off label use [Unknown]
